FAERS Safety Report 15611295 (Version 2)
Quarter: 2018Q4

REPORT INFORMATION
  Report Type: Report from Study
  Country: CA (occurrence: CA)
  Receive Date: 20181113
  Receipt Date: 20181129
  Transmission Date: 20190205
  Serious: Yes (Hospitalization)
  Sender: FDA-Public Use
  Company Number: CA-ROCHE-2212871

PATIENT
  Age: 58 Year
  Sex: Female

DRUGS (2)
  1. PERTUZUMAB. [Suspect]
     Active Substance: PERTUZUMAB
     Indication: NEOPLASM MALIGNANT
     Route: 042
     Dates: start: 20181025, end: 20181025
  2. TRASTUZUMAB. [Suspect]
     Active Substance: TRASTUZUMAB
     Indication: NEOPLASM MALIGNANT
     Route: 042
     Dates: start: 20181025, end: 20181025

REACTIONS (2)
  - Pleural effusion [Unknown]
  - Hypoxia [Unknown]

NARRATIVE: CASE EVENT DATE: 20181105
